FAERS Safety Report 8594824-7 (Version None)
Quarter: 2012Q3

REPORT INFORMATION
  Report Type: 
  Country: None (occurrence: None)
  Receive Date: 20120815
  Receipt Date: 20120803
  Transmission Date: 20120928
  Serious: Yes (Hospitalization)
  Sender: FDA-Public Use
  Company Number: ZA-ELI_LILLY_AND_COMPANY-ZA201004001405

PATIENT
  Sex: Female
  Weight: 95 kg

DRUGS (11)
  1. AMLOC [Concomitant]
     Dates: start: 19900101
  2. ARTHROTEC [Concomitant]
     Dosage: UNK, UNK
     Dates: start: 20100101
  3. GEMCITABINE HYDROCHLORIDE [Suspect]
     Indication: BREAST CANCER METASTATIC
     Dosage: 1000 MG/M2 (1920 MG), ON DAYS 1 + 8 EVERY 3 WEEKS
     Route: 042
     Dates: start: 20100301
  4. ZOMETA [Concomitant]
     Dates: start: 20100308, end: 20100308
  5. LACSON [Concomitant]
     Dates: start: 20100201
  6. TORADOL [Concomitant]
     Indication: PAIN
  7. ARTHREXIN [Concomitant]
  8. VINFLUNINE [Suspect]
     Indication: BREAST CANCER METASTATIC
     Dosage: 320 MG/M2 (614 MG), ON D1 OF EACH CYCLE
     Route: 042
     Dates: start: 20100301
  9. MORPHINE [Concomitant]
  10. ATACAND [Concomitant]
     Dates: start: 19900101
  11. LASIX [Concomitant]
     Dates: start: 19900101

REACTIONS (1)
  - CELLULITIS [None]
